FAERS Safety Report 5613040-1 (Version None)
Quarter: 2008Q1

REPORT INFORMATION
  Report Type: 
  Country: None (occurrence: None)
  Receive Date: 20080204
  Receipt Date: 20080123
  Transmission Date: 20080703
  Serious: Yes (Other)
  Sender: FDA-Public Use
  Company Number: EG-PFIZER INC-2008006989

PATIENT
  Age: 68 Year
  Sex: Male

DRUGS (3)
  1. LYRICA [Suspect]
     Indication: POST HERPETIC NEURALGIA
     Route: 048
     Dates: start: 20070915, end: 20071004
  2. CARDURA [Concomitant]
     Route: 048
  3. VALSARTAN [Concomitant]
     Route: 048

REACTIONS (2)
  - SENSATION OF BLOOD FLOW [None]
  - SLEEP DISORDER [None]
